FAERS Safety Report 5988241-3 (Version None)
Quarter: 2008Q4

REPORT INFORMATION
  Report Type: 
  Country: None (occurrence: None)
  Receive Date: 20081210
  Receipt Date: 20081201
  Transmission Date: 20090506
  Serious: Yes (Hospitalization)
  Sender: FDA-Public Use
  Company Number: DE-JNJFOC-20081200023

PATIENT
  Age: 40 Year
  Sex: Male
  Weight: 82 kg

DRUGS (4)
  1. PALIPERIDONE [Suspect]
     Route: 048
  2. PALIPERIDONE [Suspect]
     Indication: SCHIZOPHRENIA, PARANOID TYPE
     Route: 048
  3. PROMETHAZINE [Concomitant]
     Indication: SLEEP DISORDER
     Route: 048
  4. PROMETHAZINE [Concomitant]
     Indication: AGITATION
     Route: 048

REACTIONS (1)
  - SLEEP DISORDER [None]
